FAERS Safety Report 22626549 (Version 1)
Quarter: 2023Q2

REPORT INFORMATION
  Report Type: Spontaneous
  Country: FR (occurrence: FR)
  Receive Date: 20230621
  Receipt Date: 20230621
  Transmission Date: 20230722
  Serious: Yes (Hospitalization)
  Sender: FDA-Public Use
  Company Number: None

PATIENT
  Age: 46 Year
  Sex: Female
  Weight: 60 kg

DRUGS (5)
  1. CLOBAZAM [Suspect]
     Active Substance: CLOBAZAM
     Indication: Partial seizures
     Dosage: 5 MG, BID; LC 5 MG MORNING AND EVENING ABOUT TO END
     Route: 048
     Dates: end: 20230505
  2. CARBAMAZEPINE [Suspect]
     Active Substance: CARBAMAZEPINE
     Indication: Partial seizures
     Dosage: 300 MG, TID; MORNING NOON EVENING
     Route: 048
  3. BRIVIACT [Suspect]
     Active Substance: BRIVARACETAM
     Indication: Partial seizures
     Dosage: 100 MG, BID; MORNING EVENING
     Route: 048
     Dates: start: 20200617
  4. CENOBAMATE [Suspect]
     Active Substance: CENOBAMATE
     Indication: Partial seizures
     Dosage: 100 MG, QD; IN THE EVENING 200 MG IN THE EVENING FROM 05/05/2023
     Route: 048
     Dates: start: 20221214
  5. CENOBAMATE [Suspect]
     Active Substance: CENOBAMATE
     Dosage: 200 MG, QD; IN THE EVENING FROM 05/05/2023
     Route: 048
     Dates: start: 20230505

REACTIONS (1)
  - Vertigo [Recovering/Resolving]

NARRATIVE: CASE EVENT DATE: 20230414
